FAERS Safety Report 5233325-0 (Version None)
Quarter: 2007Q1

REPORT INFORMATION
  Report Type: 
  Country: None (occurrence: None)
  Receive Date: 20070206
  Receipt Date: 20070126
  Transmission Date: 20070707
  Serious: Yes (Hospitalization)
  Sender: FDA-Public Use
  Company Number: 2007BI001829

PATIENT
  Age: 35 Year
  Sex: Female
  Weight: 46.2669 kg

DRUGS (3)
  1. AVONEX [Suspect]
     Indication: MULTIPLE SCLEROSIS
     Dosage: 30 UG;QW;IM
     Route: 030
     Dates: start: 20000101, end: 20040101
  2. AVONEX [Suspect]
     Indication: MULTIPLE SCLEROSIS
     Dosage: 30 UG;QW;IM
     Route: 030
     Dates: start: 20040101, end: 20040101
  3. AVONEX [Suspect]
     Indication: MULTIPLE SCLEROSIS
     Dosage: 30 UG;QW;IM
     Route: 030
     Dates: start: 20040101

REACTIONS (8)
  - ARTHRALGIA [None]
  - DRUG HYPERSENSITIVITY [None]
  - ENDOMETRIOSIS [None]
  - INFLUENZA LIKE ILLNESS [None]
  - NAUSEA [None]
  - OVARIAN CYST [None]
  - OVARIAN NEOPLASM [None]
  - UTERINE LEIOMYOMA [None]
